FAERS Safety Report 9819052 (Version 1)
Quarter: 2014Q1

REPORT INFORMATION
  Report Type: Spontaneous
  Country: CO (occurrence: CO)
  Receive Date: 20140115
  Receipt Date: 20140115
  Transmission Date: 20141002
  Serious: Yes (Other)
  Sender: FDA-Public Use
  Company Number: CO-PFIZER INC-2014009586

PATIENT
  Age: 63 Year
  Sex: Female

DRUGS (5)
  1. EFEXOR [Suspect]
     Indication: DEPRESSION
     Dosage: 75 MG, 1X/DAY
     Route: 048
     Dates: start: 201210
  2. EFEXOR [Suspect]
     Indication: ANXIETY
     Dosage: UNK
     Route: 048
     Dates: start: 201312
  3. RANITIDINE [Concomitant]
     Dosage: UNK
  4. MONTELUKAST [Concomitant]
     Dosage: UNK
  5. LORATADINE [Concomitant]
     Dosage: UNK

REACTIONS (1)
  - Hypersensitivity vasculitis [Recovered/Resolved]
